FAERS Safety Report 5914555-9 (Version None)
Quarter: 2008Q4

REPORT INFORMATION
  Report Type: 
  Country: None (occurrence: None)
  Receive Date: 20081008
  Receipt Date: 20080924
  Transmission Date: 20090506
  Serious: Yes (Other)
  Sender: FDA-Public Use
  Company Number: CIP08001417

PATIENT
  Age: 75 Year
  Sex: Female
  Weight: 72.1 kg

DRUGS (5)
  1. ACTONEL [Suspect]
     Indication: OSTEOPENIA
     Dosage: 35 MG ONCE WEEKLY, ORAL
     Route: 048
     Dates: start: 20040101
  2. AEROBID(FLUNISOLIDE) INHALER [Concomitant]
  3. SINGULAIR/01362601/(MONTELUKAST) [Concomitant]
  4. PAXIL [Concomitant]
  5. SYNTHROID [Concomitant]

REACTIONS (1)
  - ATRIAL FLUTTER [None]
